FAERS Safety Report 4632620-3 (Version None)
Quarter: 2005Q2

REPORT INFORMATION
  Report Type: 
  Country: None (occurrence: None)
  Receive Date: 20050411
  Receipt Date: 20050316
  Transmission Date: 20051028
  Serious: Yes (Hospitalization)
  Sender: FDA-Public Use
  Company Number: MPS1-10352

PATIENT
  Age: 11 Month

DRUGS (1)
  1. ALDURAZYME [Suspect]
     Indication: MUCOPOLYSACCHARIDOSIS IH
     Dosage: 100 U/KG QWK IV
     Route: 042
     Dates: start: 20050115

REACTIONS (2)
  - ANAEMIA [None]
  - HYDROCEPHALUS [None]
